FAERS Safety Report 16341213 (Version 2)
Quarter: 2020Q2

REPORT INFORMATION
  Report Type: Spontaneous
  Country: TH (occurrence: TH)
  Receive Date: 20190522
  Receipt Date: 20200610
  Transmission Date: 20200713
  Serious: Yes (Life-Threatening, Hospitalization, Other)
  Sender: FDA-Public Use
  Company Number: TH-SUN PHARMACEUTICAL INDUSTRIES LTD-2019R1-208547

PATIENT
  Age: 68 Year
  Sex: Male

DRUGS (1)
  1. DOCETAXEL. [Suspect]
     Active Substance: DOCETAXEL
     Indication: LUNG NEOPLASM MALIGNANT
     Dosage: UNK
     Route: 065

REACTIONS (8)
  - Pseudomonas infection [Recovering/Resolving]
  - Thrombocytopenia [Unknown]
  - Respiratory failure [Recovering/Resolving]
  - Diabetic ketoacidosis [Recovered/Resolved]
  - Ecthyma [Unknown]
  - Necrotising fasciitis [Recovering/Resolving]
  - Septic shock [Recovering/Resolving]
  - Hyperglycaemic hyperosmolar nonketotic syndrome [Recovered/Resolved]
